FAERS Safety Report 16975827 (Version 3)
Quarter: 2019Q4

REPORT INFORMATION
  Report Type: Spontaneous
  Country: US (occurrence: US)
  Receive Date: 20191030
  Receipt Date: 20191209
  Transmission Date: 20200122
  Serious: Yes (Other)
  Sender: FDA-Public Use
  Company Number: US-PFIZER INC-2016597871

PATIENT
  Age: 64 Year
  Sex: Male

DRUGS (26)
  1. VIAGRA [Suspect]
     Active Substance: SILDENAFIL CITRATE
     Dosage: TWO-THREE TIMES PER WEEK
  2. ZOLPIDEM TARTRATE. [Concomitant]
     Active Substance: ZOLPIDEM TARTRATE
     Indication: INSOMNIA
     Dosage: 10 MG, 1X/DAY (AT BEDTIME, AS NEEDED)
     Dates: start: 20160908
  3. AMLACTIN [Concomitant]
     Active Substance: AMMONIUM LACTATE
     Indication: TYPE 2 DIABETES MELLITUS
     Dosage: 12 %, UNK
     Dates: start: 20160908
  4. LISINOPRIL. [Concomitant]
     Active Substance: LISINOPRIL
     Dosage: UNK (DATE STARTED: 11 YEARS)
  5. MIRALAX [Concomitant]
     Active Substance: POLYETHYLENE GLYCOL 3350
     Dosage: 1 DF, 3X/DAY
     Route: 048
     Dates: start: 20161212
  6. ATORVASTATIN CALCIUM. [Concomitant]
     Active Substance: ATORVASTATIN CALCIUM
     Dosage: UNK (DATE STARTED: 11 YEARS)
  7. TOPROL XL [Concomitant]
     Active Substance: METOPROLOL SUCCINATE
     Indication: ESSENTIAL HYPERTENSION
     Dosage: 50 MG, DAILY
     Dates: start: 20160908
  8. NEURONTIN [Concomitant]
     Active Substance: GABAPENTIN
     Dosage: UNK (DATE STARTED: 11 YEARS)
  9. COLACE [Concomitant]
     Active Substance: DOCUSATE SODIUM
     Dosage: 100 MG, 2X/DAY
     Route: 048
     Dates: start: 20161212
  10. ALCOHOL PREP PAD [Concomitant]
     Active Substance: ISOPROPYL ALCOHOL
     Indication: TYPE 2 DIABETES MELLITUS
     Dosage: 70 %, 2X/DAY
     Dates: start: 20160908
  11. MORPHINE [Concomitant]
     Active Substance: MORPHINE
     Dosage: UNK (DATE STARTED: 11 YEARS)
  12. METFORMIN HCL [Concomitant]
     Active Substance: METFORMIN HYDROCHLORIDE
     Dosage: UNK (DATE STARTED: 11 YEARS)
  13. ZOLPIDEM TARTRATE. [Concomitant]
     Active Substance: ZOLPIDEM TARTRATE
     Dosage: UNK (DATE STARTED: 11 YEARS)
  14. OXYCODONE AND ACETAMINOPHEN [Concomitant]
     Active Substance: ACETAMINOPHEN\OXYCODONE HYDROCHLORIDE
     Dosage: UNK (DATE STARTED: 11 YEARS, OXYCODONE-ACETAMINOPHEN 10-325)
  15. ASPIRIN (E.C.) [Concomitant]
     Active Substance: ASPIRIN
     Dosage: 81 MG, DAILY
     Dates: start: 20161212
  16. GABAPENTIN. [Concomitant]
     Active Substance: GABAPENTIN
     Dosage: UNK
  17. METFORMIN HCL [Concomitant]
     Active Substance: METFORMIN HYDROCHLORIDE
     Indication: TYPE 2 DIABETES MELLITUS
     Dosage: 500 MG, 2X/DAY
     Dates: start: 20160908
  18. TOPROL XL [Concomitant]
     Active Substance: METOPROLOL SUCCINATE
     Dosage: UNK (DATE STARTED: 11 YEARS)
  19. LISINOPRIL. [Concomitant]
     Active Substance: LISINOPRIL
     Indication: ESSENTIAL HYPERTENSION
     Dosage: 20 MG, DAILY
     Dates: start: 20160908
  20. GABAPENTIN. [Concomitant]
     Active Substance: GABAPENTIN
     Dosage: 300 MG, 3X/DAY
     Route: 048
     Dates: start: 20161212
  21. ALCOHOL PREP PAD [Concomitant]
     Active Substance: ISOPROPYL ALCOHOL
     Dosage: UNK
  22. VIAGRA [Suspect]
     Active Substance: SILDENAFIL CITRATE
     Indication: ERECTILE DYSFUNCTION
     Dosage: 100 MG, 1X/DAY
     Dates: start: 20160908
  23. ATORVASTATIN CALCIUM. [Concomitant]
     Active Substance: ATORVASTATIN CALCIUM
     Indication: HYPERLIPIDAEMIA
     Dosage: 80 MG, DAILY
     Dates: start: 20160908
  24. MOBIC [Concomitant]
     Active Substance: MELOXICAM
     Indication: PAIN MANAGEMENT
     Dosage: 15 MG, DAILY
     Route: 048
     Dates: start: 20161212
  25. NEURONTIN [Concomitant]
     Active Substance: GABAPENTIN
     Indication: PAIN MANAGEMENT
     Dosage: 300 MG, 3X/DAY
     Route: 048
     Dates: start: 20161212
  26. CYCLOBENZAPRINE. [Concomitant]
     Active Substance: CYCLOBENZAPRINE
     Dosage: UNK (DATE STARTED: 11 YEARS)

REACTIONS (1)
  - Aneurysm [Unknown]
